FAERS Safety Report 22012865 (Version 1)
Quarter: 2023Q1

REPORT INFORMATION
  Report Type: Spontaneous
  Country: DE (occurrence: DE)
  Receive Date: 20230220
  Receipt Date: 20230220
  Transmission Date: 20230418
  Serious: Yes (Hospitalization, Other)
  Sender: FDA-Public Use
  Company Number: DE-CHEPLA-2023000889

PATIENT
  Age: 63 Year
  Sex: Male

DRUGS (8)
  1. EPINEPHRINE [Suspect]
     Active Substance: EPINEPHRINE
     Indication: Product used for unknown indication
     Dosage: 500 MICROGRAM, QH DAY 0, DAY 1
     Route: 065
  2. EPINEPHRINE [Suspect]
     Active Substance: EPINEPHRINE
     Dosage: 200 MICROGRAM, QH DAY 2
     Route: 065
  3. NOREPINEPHRINE [Suspect]
     Active Substance: NOREPINEPHRINE
     Indication: Product used for unknown indication
     Dosage: 300 MICROGRAM, QH DAY 0
     Route: 065
  4. ATROPINE [Suspect]
     Active Substance: ATROPINE
     Indication: Chemical poisoning
     Dosage: 10 MILLIGRAM, QH
     Route: 065
  5. ALCOHOL [Suspect]
     Active Substance: ALCOHOL
     Indication: Product used for unknown indication
     Dosage: 700 MILLILITER
     Route: 048
  6. OBIDOXIME [Concomitant]
     Indication: Chemical poisoning
     Dosage: 250 MILLIGRAM
     Route: 065
  7. OBIDOXIME [Concomitant]
     Dosage: 750 MILLIGRAM, QD
     Route: 065
  8. DOBUTAMINE [Concomitant]
     Active Substance: DOBUTAMINE HYDROCHLORIDE
     Dosage: UNK
     Route: 065

REACTIONS (4)
  - Cholinergic syndrome [Recovering/Resolving]
  - Bradycardia [Unknown]
  - Respiratory distress [Unknown]
  - Pneumonia [Unknown]
